FAERS Safety Report 16876839 (Version 4)
Quarter: 2020Q2

REPORT INFORMATION
  Report Type: Spontaneous
  Country: US (occurrence: US)
  Receive Date: 20191002
  Receipt Date: 20200430
  Transmission Date: 20200713
  Serious: Yes (Other)
  Sender: FDA-Public Use
  Company Number: US-GILEAD-2019-0430975

PATIENT
  Age: 36 Year
  Sex: Female

DRUGS (13)
  1. TRUVADA [Suspect]
     Active Substance: EMTRICITABINE\TENOFOVIR DISOPROXIL FUMARATE
     Indication: HIV INFECTION
     Dosage: UNK
     Route: 048
     Dates: start: 201102, end: 201805
  2. SERTRALINE [Concomitant]
     Active Substance: SERTRALINE HYDROCHLORIDE
  3. VITAMIN D [ERGOCALCIFEROL] [Concomitant]
     Active Substance: ERGOCALCIFEROL
  4. CORTISPORIN (HYDROCORTISONE ACETATE\NEOMYCIN SULFATE\POLYMYXIN B SULFATE) [Concomitant]
     Active Substance: HYDROCORTISONE\HYDROCORTISONE ACETATE\NEOMYCIN SULFATE\POLYMYXIN B SULFATE
  5. NITROFURANTOIN. [Concomitant]
     Active Substance: NITROFURANTOIN
  6. AMOXICILLIN. [Concomitant]
     Active Substance: AMOXICILLIN
  7. ATOVAQUONE. [Concomitant]
     Active Substance: ATOVAQUONE
  8. NORETHINDRONE [NORETHISTERONE ACETATE] [Concomitant]
  9. VITAMIN D3 [Concomitant]
     Active Substance: CHOLECALCIFEROL
  10. ISENTRESS [Concomitant]
     Active Substance: RALTEGRAVIR POTASSIUM
  11. METFORMIN [Concomitant]
     Active Substance: METFORMIN HYDROCHLORIDE
  12. CEFDINIR. [Concomitant]
     Active Substance: CEFDINIR
  13. ATRIPLA [Suspect]
     Active Substance: EFAVIRENZ\EMTRICITABINE\TENOFOVIR DISOPROXIL FUMARATE
     Indication: HIV INFECTION
     Dosage: UNK
     Route: 048
     Dates: start: 201102, end: 201805

REACTIONS (10)
  - Economic problem [Unknown]
  - Pain [Unknown]
  - Fracture [Recovered/Resolved]
  - Anxiety [Unknown]
  - Emotional distress [Unknown]
  - Bone density abnormal [Unknown]
  - Osteonecrosis [Unknown]
  - Bone loss [Recovered/Resolved]
  - Bone density decreased [Unknown]
  - Anhedonia [Unknown]

NARRATIVE: CASE EVENT DATE: 201702
